FAERS Safety Report 9106691 (Version 3)
Quarter: 2013Q1

REPORT INFORMATION
  Report Type: Report from Study
  Country: FR (occurrence: FR)
  Receive Date: 20130221
  Receipt Date: 20130325
  Transmission Date: 20140127
  Serious: Yes (Hospitalization, Other)
  Sender: FDA-Public Use
  Company Number: FR-BAXTER-2013BAX006156

PATIENT
  Age: 55 Year
  Sex: Female
  Weight: 78 kg

DRUGS (17)
  1. ENDOXAN [Suspect]
     Indication: BREAST CANCER
     Route: 042
     Dates: start: 20120905
  2. ENDOXAN [Suspect]
     Route: 042
     Dates: start: 20121017
  3. PERTUZUMAB [Suspect]
     Indication: BREAST CANCER
     Route: 042
     Dates: start: 20121114
  4. PERTUZUMAB [Suspect]
     Route: 042
     Dates: start: 20121114
  5. PERTUZUMAB [Suspect]
     Route: 042
     Dates: start: 20121226
  6. PERTUZUMAB [Suspect]
     Route: 042
     Dates: start: 20130116, end: 20130206
  7. TRASTUZUMAB [Suspect]
     Indication: BREAST CANCER
     Route: 042
     Dates: start: 20121114
  8. TRASTUZUMAB [Suspect]
     Route: 042
     Dates: start: 20121114
  9. TRASTUZUMAB [Suspect]
     Route: 042
     Dates: start: 20130116, end: 20130206
  10. DOCETAXEL [Suspect]
     Indication: BREAST CANCER
     Route: 042
     Dates: start: 20121114
  11. DOCETAXEL [Suspect]
     Route: 042
     Dates: start: 20121114
  12. FLUOROURACIL [Suspect]
     Indication: BREAST CANCER
     Route: 042
     Dates: start: 20120905
  13. FLUOROURACIL [Suspect]
     Route: 042
     Dates: start: 20121017
  14. EPIRUBICIN [Suspect]
     Indication: BREAST CANCER
     Route: 042
     Dates: start: 20120905
  15. EPIRUBICIN [Suspect]
     Route: 042
     Dates: start: 20121017
  16. PLAVIX [Concomitant]
     Indication: PRODUCT USED FOR UNKNOWN INDICATION
     Route: 065
  17. PROZAC [Concomitant]
     Indication: PRODUCT USED FOR UNKNOWN INDICATION
     Route: 065

REACTIONS (2)
  - Hypokalaemia [Recovered/Resolved]
  - Ejection fraction decreased [Not Recovered/Not Resolved]
